FAERS Safety Report 21798628 (Version 1)
Quarter: 2022Q4

REPORT INFORMATION
  Report Type: Spontaneous
  Country: IT (occurrence: IT)
  Receive Date: 20221230
  Receipt Date: 20221230
  Transmission Date: 20230113
  Serious: No
  Sender: FDA-Public Use
  Company Number: IT-ALKEM LABORATORIES LIMITED-DE-ALKEM-2022-10705

PATIENT
  Age: 16 Month
  Sex: Male

DRUGS (2)
  1. SIROLIMUS [Suspect]
     Active Substance: SIROLIMUS
     Indication: Cystic lymphangioma
     Dosage: 0.4-0.8 MG/M2, BID (2 TIMES PER DAY)
     Route: 048
  2. SIROLIMUS [Suspect]
     Active Substance: SIROLIMUS
     Dosage: UNK (GRADUAL INCREASED)
     Route: 065

REACTIONS (1)
  - Therapy partial responder [Unknown]
